FAERS Safety Report 8477450-X (Version None)
Quarter: 2012Q2

REPORT INFORMATION
  Report Type: 
  Country: None (occurrence: None)
  Receive Date: 20120620
  Receipt Date: 20120606
  Transmission Date: 20120825
  Serious: Yes (Disabling, Other)
  Sender: FDA-Public Use
  Company Number: ACO_30647_2012

PATIENT
  Age: 63 Year
  Sex: Female

DRUGS (1)
  1. AMPYRA [Suspect]
     Indication: PRODUCT USED FOR UNKNOWN INDICATION
     Dosage: 10 MG, Q 12 HRS, ORAL
     Route: 048
     Dates: start: 20100101

REACTIONS (4)
  - ANKLE FRACTURE [None]
  - ABASIA [None]
  - PATELLA FRACTURE [None]
  - ROAD TRAFFIC ACCIDENT [None]
